FAERS Safety Report 8086935-X (Version None)
Quarter: 2012Q1

REPORT INFORMATION
  Report Type: 
  Country: None (occurrence: None)
  Receive Date: 20120128
  Receipt Date: 20110517
  Transmission Date: 20120608
  Serious: No
  Sender: FDA-Public Use
  Company Number: US-ABBOTT-11P-163-0727364-00

PATIENT
  Age: 20 Year
  Sex: Female
  Weight: 59.928 kg

DRUGS (2)
  1. HUMIRA [Suspect]
     Indication: NAIL PSORIASIS
     Route: 058
     Dates: start: 20110401
  2. UNKNOWN BIRTH CONTROL MEDICATION [Concomitant]
     Indication: CONTRACEPTION

REACTIONS (8)
  - COUGH [None]
  - INJECTION SITE PAIN [None]
  - PYREXIA [None]
  - SINUS CONGESTION [None]
  - FEAR [None]
  - FATIGUE [None]
  - EAR INFECTION [None]
  - ANXIETY [None]
